FAERS Safety Report 8426206-2 (Version None)
Quarter: 2012Q2

REPORT INFORMATION
  Report Type: 
  Country: None (occurrence: None)
  Receive Date: 20120611
  Receipt Date: 20120531
  Transmission Date: 20120825
  Serious: No
  Sender: FDA-Public Use
  Company Number: US-MYLANLABS-2012S1008969

PATIENT
  Age: 30 Year
  Sex: Female
  Weight: 77.11 kg

DRUGS (15)
  1. CYCLOBENZAPRINE HCL [Suspect]
     Indication: MYALGIA
     Dosage: UP TO 3 TIMES A DAY
     Route: 048
     Dates: start: 20100101
  2. CYCLOBENZAPRINE HCL [Suspect]
     Indication: AUTONOMIC NERVOUS SYSTEM IMBALANCE
     Dosage: UP TO 3 TIMES A DAY
     Route: 048
     Dates: start: 20100101
  3. OXYCODONE HCL [Concomitant]
     Route: 048
  4. EFFEXOR [Concomitant]
     Route: 048
  5. BACLOFEN [Concomitant]
     Route: 048
  6. VITAMIN D [Concomitant]
  7. ONDANSETRON [Concomitant]
  8. PIRACETAM [Concomitant]
  9. PROVIGIL [Concomitant]
     Route: 048
  10. ROZEREM [Concomitant]
  11. COQ-10 [Concomitant]
  12. CYCLOBENZAPRINE HCL [Suspect]
     Dosage: UP TO 3 TIMES A DAY
     Route: 048
  13. BUPROPION HCL [Concomitant]
     Route: 048
  14. METOPROLOL SUCCINATE [Concomitant]
  15. CYCLOBENZAPRINE HCL [Suspect]
     Dosage: UP TO 3 TIMES A DAY
     Route: 048

REACTIONS (2)
  - COELIAC DISEASE [None]
  - GASTROINTESTINAL DISORDER [None]
